FAERS Safety Report 22231426 (Version 2)
Quarter: 2023Q2

REPORT INFORMATION
  Report Type: Spontaneous
  Country: US (occurrence: US)
  Receive Date: 20230420
  Receipt Date: 20230422
  Transmission Date: 20230721
  Serious: Yes (Hospitalization, Other)
  Sender: FDA-Public Use
  Company Number: US-UNITED THERAPEUTICS-UNT-2022-032118

PATIENT
  Age: 73 Year
  Sex: Female
  Weight: 47.619 kg

DRUGS (7)
  1. REMODULIN [Suspect]
     Active Substance: TREPROSTINIL
     Indication: Pulmonary arterial hypertension
     Dosage: 0.085 ?G/KG, CONTINUING
     Route: 058
  2. REMODULIN [Suspect]
     Active Substance: TREPROSTINIL
     Dosage: UNK, CONTINUING
     Route: 058
  3. REMODULIN [Suspect]
     Active Substance: TREPROSTINIL
     Dosage: UNK, CONTINUING
     Route: 058
     Dates: start: 20191007, end: 20230405
  4. REMODULIN [Suspect]
     Active Substance: TREPROSTINIL
     Indication: Pulmonary arterial hypertension
     Dosage: 0.0912 ?G/KG, CONTINUING
     Route: 041
     Dates: start: 202304, end: 202304
  5. REMODULIN [Suspect]
     Active Substance: TREPROSTINIL
     Dosage: 0.0903 ?G/KG, CONTINUING
     Route: 041
     Dates: start: 202304
  6. REMODULIN [Suspect]
     Active Substance: TREPROSTINIL
     Dosage: UNK, CONTINUING
     Route: 041
     Dates: start: 20230405
  7. OPSUMIT [Concomitant]
     Active Substance: MACITENTAN
     Indication: Product used for unknown indication
     Dosage: UNK
     Route: 065

REACTIONS (11)
  - Ascites [Recovering/Resolving]
  - Right ventricular failure [Unknown]
  - Therapy non-responder [Unknown]
  - Subcutaneous drug absorption impaired [Unknown]
  - Infusion site pain [Unknown]
  - Infusion site erythema [Unknown]
  - Disease progression [Unknown]
  - Hypotension [Not Recovered/Not Resolved]
  - Headache [Unknown]
  - Diarrhoea [Unknown]
  - Nausea [Unknown]

NARRATIVE: CASE EVENT DATE: 20230328
